FAERS Safety Report 20764129 (Version 2)
Quarter: 2022Q2

REPORT INFORMATION
  Report Type: Report from Study
  Country: US (occurrence: US)
  Receive Date: 20220428
  Receipt Date: 20220608
  Transmission Date: 20220720
  Serious: No
  Sender: FDA-Public Use
  Company Number: US-SUNOVION-2022SUN001348

PATIENT
  Age: 83 Year
  Sex: Male

DRUGS (1)
  1. KYNMOBI [Suspect]
     Active Substance: APOMORPHINE HYDROCHLORIDE
     Indication: Parkinson^s disease
     Dosage: 10 MG
     Route: 060

REACTIONS (9)
  - Diarrhoea [Recovered/Resolved]
  - Malaise [Recovered/Resolved]
  - Retching [Recovered/Resolved]
  - Yawning [Not Recovered/Not Resolved]
  - Nausea [Recovered/Resolved]
  - Presyncope [Recovered/Resolved]
  - Somnolence [Not Recovered/Not Resolved]
  - Vomiting [Recovered/Resolved]
  - Hypotension [Not Recovered/Not Resolved]

NARRATIVE: CASE EVENT DATE: 20220425
